FAERS Safety Report 6610996-5 (Version None)
Quarter: 2010Q1

REPORT INFORMATION
  Report Type: 
  Country: None (occurrence: None)
  Receive Date: 20100222
  Receipt Date: 20100208
  Transmission Date: 20100710
  Serious: Yes (Other)
  Sender: FDA-Public Use
  Company Number: 005811

PATIENT
  Sex: Female

DRUGS (2)
  1. NEUPRO [Suspect]
     Indication: RESTLESS LEGS SYNDROME
     Dosage: (3MG), (3 MG QD TRANSDERMAL)
     Route: 062
     Dates: start: 20090901
  2. NEUPRO [Suspect]
     Indication: RESTLESS LEGS SYNDROME
     Dosage: (3MG), (3 MG QD TRANSDERMAL)
     Route: 062
     Dates: start: 20091201

REACTIONS (1)
  - APPLICATION SITE HYPERSENSITIVITY [None]
